FAERS Safety Report 7011490-2 (Version None)
Quarter: 2010Q3

REPORT INFORMATION
  Report Type: 
  Country: None (occurrence: None)
  Receive Date: 20100923
  Receipt Date: 20090122
  Transmission Date: 20110219
  Serious: No
  Sender: FDA-Public Use
  Company Number: US-WYE-H07872609

PATIENT
  Age: 50 Year
  Sex: Female
  Weight: 56.75 kg

DRUGS (1)
  1. ADVIL COLD AND SINUS [Suspect]
     Indication: SINUS HEADACHE
     Route: 048

REACTIONS (1)
  - COELIAC DISEASE [None]
